FAERS Safety Report 4983497-8 (Version None)
Quarter: 2006Q2

REPORT INFORMATION
  Report Type: 
  Country: None (occurrence: None)
  Receive Date: 20060419
  Receipt Date: 20060327
  Transmission Date: 20061013
  Serious: Yes (Other)
  Sender: FDA-Public Use
  Company Number: BR200603000504

PATIENT
  Age: 46 Year
  Sex: Male

DRUGS (1)
  1. CIALIS [Suspect]
     Dosage: 20 MG, ORAL
     Route: 048

REACTIONS (3)
  - CHORIORETINOPATHY [None]
  - DETACHMENT OF RETINAL PIGMENT EPITHELIUM [None]
  - RETINAL DETACHMENT [None]
